FAERS Safety Report 12769262 (Version 1)
Quarter: 2016Q3

REPORT INFORMATION
  Report Type: Spontaneous
  Country: US (occurrence: US)
  Receive Date: 20160921
  Receipt Date: 20160921
  Transmission Date: 20161109
  Serious: No
  Sender: FDA-Public Use
  Company Number: US-009507513-1609USA004825

PATIENT

DRUGS (3)
  1. BLOOD, WHOLE [Concomitant]
     Active Substance: WHOLE BLOOD
  2. KEYTRUDA [Suspect]
     Active Substance: PEMBROLIZUMAB
     Indication: PLEURAL MESOTHELIOMA
     Dosage: 19 200 MG EVERY THREE WEEK INFUSION
     Dates: start: 20150808
  3. IRON (UNSPECIFIED) [Concomitant]
     Active Substance: IRON
     Dosage: FOUR INFUSIONS

REACTIONS (3)
  - Product use issue [Unknown]
  - No adverse event [Unknown]
  - Therapeutic response unexpected [Unknown]

NARRATIVE: CASE EVENT DATE: 20150808
